FAERS Safety Report 9196187 (Version 1)
Quarter: 2013Q1

REPORT INFORMATION
  Report Type: Spontaneous
  Country: SE (occurrence: SE)
  Receive Date: 20130328
  Receipt Date: 20130328
  Transmission Date: 20140127
  Serious: Yes (Hospitalization)
  Sender: FDA-Public Use
  Company Number: SE-JNJFOC-20130309210

PATIENT
  Age: 52 Year
  Sex: Male

DRUGS (2)
  1. HALDOL [Suspect]
     Indication: SCHIZOPHRENIA
     Dosage: 2 MG IN THE MORNING AND 2 MG IN THE EVENING
     Route: 048
  2. CLOZAPINE [Suspect]
     Indication: PRODUCT USED FOR UNKNOWN INDICATION
     Route: 065

REACTIONS (6)
  - Aggression [Unknown]
  - Activities of daily living impaired [Unknown]
  - Dystonia [Unknown]
  - Toxicity to various agents [Unknown]
  - Fall [Unknown]
  - Limb injury [Unknown]
